FAERS Safety Report 4924966-6 (Version None)
Quarter: 2006Q1

REPORT INFORMATION
  Report Type: 
  Country: None (occurrence: None)
  Receive Date: 20060222
  Receipt Date: 20060209
  Transmission Date: 20060701
  Serious: Yes (Death)
  Sender: FDA-Public Use
  Company Number: R301467-PRT06T-J

PATIENT
  Age: 81 Year
  Sex: Female
  Weight: 42 kg

DRUGS (7)
  1. RABEPRAZOLE SODIUM [Suspect]
     Indication: DUODENAL ULCER
     Dosage: 20 MG, 1 IN 1 D, ORAL
     Route: 048
     Dates: start: 20050725
  2. RABEPRAZOLE SODIUM [Suspect]
     Indication: GASTRIC ULCER
     Dosage: 20 MG, 1 IN 1 D, ORAL
     Route: 048
     Dates: start: 20050725
  3. LORCAM (LORNOXICAM) [Concomitant]
  4. MUCOSTA (REBAMIPIDE) [Concomitant]
  5. UNASYN (SULTAMICILIN TOSILATE) [Concomitant]
  6. PL [Concomitant]
  7. TRANSAMIN (TRANEXAMIC ACID) [Concomitant]

REACTIONS (6)
  - CARDIAC ARREST [None]
  - DISSEMINATED INTRAVASCULAR COAGULATION [None]
  - DUODENAL ULCER PERFORATION [None]
  - GENERAL PHYSICAL HEALTH DETERIORATION [None]
  - PERITONITIS [None]
  - SEPSIS [None]
